FAERS Safety Report 4611677-X (Version None)
Quarter: 2005Q2

REPORT INFORMATION
  Report Type: 
  Country: None (occurrence: None)
  Receive Date: 20050311
  Receipt Date: 20050106
  Transmission Date: 20051028
  Serious: No
  Sender: FDA-Public Use
  Company Number: 2005-BP-00279BP

PATIENT
  Age: 59 Year
  Sex: Female

DRUGS (7)
  1. SPIRIVA [Suspect]
     Indication: CHRONIC OBSTRUCTIVE PULMONARY DISEASE
     Dosage: 18 MCG (18 MCG, 1 CAPSULE QD), IH
     Route: 055
     Dates: start: 20040501
  2. SPIRIVA [Suspect]
     Indication: EMPHYSEMA
     Dosage: 18 MCG (18 MCG, 1 CAPSULE QD), IH
     Route: 055
     Dates: start: 20040501
  3. .. [Concomitant]
  4. DIOVAN [Concomitant]
  5. TOPROL-XL [Concomitant]
  6. CRESTOR [Concomitant]
  7. PROTONIX [Concomitant]

REACTIONS (2)
  - DRUG INEFFECTIVE [None]
  - FATIGUE [None]
